FAERS Safety Report 7048922-X (Version None)
Quarter: 2010Q4

REPORT INFORMATION
  Report Type: 
  Country: None (occurrence: None)
  Receive Date: 20101012
  Receipt Date: 20100914
  Transmission Date: 20110411
  Serious: Yes (Death)
  Sender: FDA-Public Use
  Company Number: 018752

PATIENT
  Age: 61 Year
  Sex: Male

DRUGS (1)
  1. ROTIGOTINE (ROTIGOTINE) [Suspect]
     Indication: RESTLESS LEGS SYNDROME
     Dosage: TRANSDERMAL PATCH
     Route: 062

REACTIONS (1)
  - SUDDEN DEATH [None]
